FAERS Safety Report 4521576-X (Version None)
Quarter: 2004Q4

REPORT INFORMATION
  Report Type: 
  Country: None (occurrence: None)
  Receive Date: 20041208
  Receipt Date: 20041208
  Transmission Date: 20050328
  Serious: No
  Sender: FDA-Public Use
  Company Number: None

PATIENT
  Sex: Male
  Weight: 91.173 kg

DRUGS (2)
  1. EFFEXOR XR [Suspect]
     Indication: ANXIETY
     Dosage: 1 DAILY  ORAL
     Route: 048
     Dates: start: 20010809, end: 20041207
  2. EFFEXOR XR [Suspect]
     Indication: STRESS SYMPTOMS
     Dosage: 1 DAILY  ORAL
     Route: 048
     Dates: start: 20010809, end: 20041207

REACTIONS (18)
  - AGORAPHOBIA [None]
  - APATHY [None]
  - ARTHRALGIA [None]
  - ASTHENIA [None]
  - BENIGN PROSTATIC HYPERPLASIA [None]
  - DIZZINESS [None]
  - FEELING ABNORMAL [None]
  - HEADACHE [None]
  - HYPERSENSITIVITY [None]
  - INSOMNIA [None]
  - LETHARGY [None]
  - LOSS OF LIBIDO [None]
  - MOOD SWINGS [None]
  - PARAESTHESIA [None]
  - SOCIAL AVOIDANT BEHAVIOUR [None]
  - SOMNOLENCE [None]
  - TINNITUS [None]
  - WEIGHT INCREASED [None]
